FAERS Safety Report 6635544-5 (Version None)
Quarter: 2010Q1

REPORT INFORMATION
  Report Type: 
  Country: None (occurrence: None)
  Receive Date: 20100315
  Receipt Date: 20100305
  Transmission Date: 20100710
  Serious: Yes (Hospitalization)
  Sender: FDA-Public Use
  Company Number: DE-ABBOTT-09P-062-0562662-00

PATIENT
  Age: 61 Year
  Sex: Male

DRUGS (11)
  1. ERGENYL CHRONO TABLETS [Suspect]
     Indication: BIPOLAR DISORDER
     Route: 048
     Dates: start: 20080815, end: 20080827
  2. ERGENYL CHRONO TABLETS [Suspect]
     Route: 048
     Dates: start: 20080828, end: 20080930
  3. RISPERDAL [Concomitant]
     Indication: DRUG USE FOR UNKNOWN INDICATION
     Route: 048
     Dates: start: 20080815, end: 20080903
  4. RISPERDAL [Concomitant]
     Route: 048
     Dates: start: 20080828, end: 20080829
  5. RISPERDAL [Concomitant]
     Route: 048
     Dates: start: 20080830, end: 20080903
  6. ATACAND [Concomitant]
     Indication: HYPERTENSION
     Route: 048
     Dates: end: 20080828
  7. ATACAND HCT [Concomitant]
     Indication: HYPERTENSION
     Dosage: 16/12.5MG
     Route: 048
     Dates: start: 20080829
  8. KALINOR [Concomitant]
     Indication: DRUG USE FOR UNKNOWN INDICATION
     Route: 048
     Dates: start: 20080816, end: 20080911
  9. KALINOR [Concomitant]
     Route: 048
     Dates: start: 20080827, end: 20080911
  10. CONCOR [Concomitant]
     Indication: DRUG USE FOR UNKNOWN INDICATION
     Route: 048
     Dates: start: 20080903
  11. ZOPLICONE [Concomitant]
     Indication: DRUG USE FOR UNKNOWN INDICATION
     Route: 048
     Dates: start: 20080815, end: 20080910

REACTIONS (4)
  - EYELID OEDEMA [None]
  - GASTROINTESTINAL MOTILITY DISORDER [None]
  - INCONTINENCE [None]
  - OEDEMA PERIPHERAL [None]
